FAERS Safety Report 24541420 (Version 1)
Quarter: 2024Q4

REPORT INFORMATION
  Report Type: Spontaneous
  Country: DE (occurrence: DE)
  Receive Date: 20241023
  Receipt Date: 20241023
  Transmission Date: 20250114
  Serious: Yes (Hospitalization)
  Sender: REGENERON
  Company Number: DE-BAYER-2024A150000

PATIENT
  Age: 63 Year
  Sex: Female

DRUGS (1)
  1. EYLEA HD [Suspect]
     Active Substance: AFLIBERCEPT
     Indication: Product used for unknown indication
     Dosage: 8 MG, ONCE;SOLUTION FOR INJECTION; 114.3 MG/ML
     Dates: start: 20240926, end: 20240926

REACTIONS (6)
  - Visual acuity reduced [Not Recovered/Not Resolved]
  - Vitreous opacities [Not Recovered/Not Resolved]
  - Anterior chamber cell [Unknown]
  - Vitreal cells [Unknown]
  - Vision blurred [Unknown]
  - Eye irritation [Recovering/Resolving]

NARRATIVE: CASE EVENT DATE: 20240928
